FAERS Safety Report 8028490-6 (Version None)
Quarter: 2012Q1

REPORT INFORMATION
  Report Type: 
  Country: None (occurrence: None)
  Receive Date: 20120106
  Receipt Date: 20110817
  Transmission Date: 20120608
  Serious: No
  Sender: FDA-Public Use
  Company Number: US-MYLANLABS-2011S1017409

PATIENT
  Age: 82 Year
  Sex: Male

DRUGS (5)
  1. BENICAR [Concomitant]
     Indication: BLOOD CHOLESTEROL
     Route: 048
  2. ASPIRIN [Concomitant]
     Route: 048
  3. CORTISONE ACETATE [Concomitant]
     Indication: PRURITUS
     Route: 030
     Dates: start: 20110101
  4. CETIRIZINE HYDROCHLORIDE [Suspect]
     Indication: PRURITUS
     Route: 048
     Dates: start: 20110101, end: 20110601
  5. SIMVASTATIN [Concomitant]
     Indication: BLOOD PRESSURE INCREASED
     Route: 048

REACTIONS (2)
  - DRUG EFFECT DECREASED [None]
  - PRURITUS GENERALISED [None]
